FAERS Safety Report 4673844-9 (Version None)
Quarter: 2005Q2

REPORT INFORMATION
  Report Type: 
  Country: None (occurrence: None)
  Receive Date: 20050524
  Receipt Date: 20050505
  Transmission Date: 20051028
  Serious: Yes (Death)
  Sender: FDA-Public Use
  Company Number: EWC050343214

PATIENT
  Age: 64 Year
  Sex: Male

DRUGS (5)
  1. ZYPREXA [Suspect]
     Indication: BIPOLAR DISORDER
     Dosage: 10 MG/1 DAY
     Dates: start: 20050223, end: 20050201
  2. ZINACEF [Concomitant]
  3. SEROQUEL [Concomitant]
  4. CLONAZEPAM [Concomitant]
  5. TEGRETOL (CARBAMAZEPINE RIVOPHARM) [Concomitant]

REACTIONS (18)
  - BRONCHOPNEUMONIA [None]
  - CARDIAC FAILURE [None]
  - CEREBRAL ATHEROSCLEROSIS [None]
  - CEREBRAL THROMBOSIS [None]
  - COMA [None]
  - CYSTITIS [None]
  - DEHYDRATION [None]
  - DISORIENTATION [None]
  - DYSARTHRIA [None]
  - ELECTROCARDIOGRAM T WAVE ABNORMAL [None]
  - HEPATOTOXICITY [None]
  - HYPERTENSION [None]
  - LIVER DISORDER [None]
  - MYOCARDIAL ISCHAEMIA [None]
  - PSYCHOTIC DISORDER [None]
  - RESPIRATORY FAILURE [None]
  - SHOCK [None]
  - SPEECH DISORDER [None]
